FAERS Safety Report 14647866 (Version 2)
Quarter: 2018Q2

REPORT INFORMATION
  Report Type: Report from Study
  Country: US (occurrence: US)
  Receive Date: 20180316
  Receipt Date: 20180405
  Transmission Date: 20180711
  Serious: Yes (Hospitalization, Other)
  Sender: FDA-Public Use
  Company Number: US-GILEAD-2017-0300914

PATIENT
  Age: 59 Year
  Sex: Male
  Weight: 84.5 kg

DRUGS (32)
  1. AMBRISENTAN [Suspect]
     Active Substance: AMBRISENTAN
     Dosage: 10 MG, QD
     Route: 048
     Dates: end: 20171108
  2. VITAMIN C [Concomitant]
     Active Substance: ASCORBIC ACID
  3. COLCHICINE. [Concomitant]
     Active Substance: COLCHICINE
  4. ATIVAN [Concomitant]
     Active Substance: LORAZEPAM
  5. BENZONATATE. [Concomitant]
     Active Substance: BENZONATATE
  6. WARFARIN [Concomitant]
     Active Substance: WARFARIN
  7. DUONEB [Concomitant]
     Active Substance: ALBUTEROL SULFATE\IPRATROPIUM BROMIDE
  8. VITAMIN D3 [Concomitant]
     Active Substance: CHOLECALCIFEROL
  9. FLOVENT [Concomitant]
     Active Substance: FLUTICASONE PROPIONATE
  10. ZOFRAN [Concomitant]
     Active Substance: ONDANSETRON HYDROCHLORIDE
  11. VITAMIN A                          /00056001/ [Concomitant]
     Active Substance: RETINOL
  12. NORCO [Concomitant]
     Active Substance: ACETAMINOPHEN\HYDROCODONE BITARTRATE
  13. MULTIVITAMIN                       /00097801/ [Concomitant]
     Active Substance: VITAMINS
  14. LASIX [Concomitant]
     Active Substance: FUROSEMIDE
  15. TOFRANIL [Concomitant]
     Active Substance: IMIPRAMINE HYDROCHLORIDE
  16. LISINOPRIL. [Concomitant]
     Active Substance: LISINOPRIL
  17. PRILOSEC [Concomitant]
     Active Substance: OMEPRAZOLE MAGNESIUM
  18. CARVEDILOL. [Concomitant]
     Active Substance: CARVEDILOL
  19. HYDROCODONE [Concomitant]
     Active Substance: HYDROCODONE
  20. SINEQUAN [Concomitant]
     Active Substance: DOXEPIN HYDROCHLORIDE
  21. IRON [Concomitant]
     Active Substance: IRON
  22. AMBRISENTAN [Suspect]
     Active Substance: AMBRISENTAN
     Indication: PULMONARY HYPERTENSION
     Dosage: 5 MG, QD
     Route: 048
     Dates: start: 201705
  23. DOCUSATE [Concomitant]
     Active Substance: DOCUSATE
  24. TENORMIN [Concomitant]
     Active Substance: ATENOLOL
  25. REMERON [Concomitant]
     Active Substance: MIRTAZAPINE
  26. SPIRIVA [Concomitant]
     Active Substance: TIOTROPIUM BROMIDE MONOHYDRATE
  27. ASCORBIC ACID. [Concomitant]
     Active Substance: ASCORBIC ACID
  28. INSULIN LISPRO [Concomitant]
     Active Substance: INSULIN LISPRO
  29. ADCIRCA [Concomitant]
     Active Substance: TADALAFIL
  30. POTASSIUM CHLORIDE                 /07513001/ [Concomitant]
     Active Substance: POTASSIUM CHLORIDE\RIBOFLAVIN 5^-PHOSPHATE SODIUM
  31. MIDAMOR [Concomitant]
     Active Substance: AMILORIDE HYDROCHLORIDE
  32. LACTULOSE. [Concomitant]
     Active Substance: LACTULOSE

REACTIONS (11)
  - Hypoxia [Unknown]
  - Abdominal discomfort [Unknown]
  - Right ventricular failure [Unknown]
  - Haemoptysis [Unknown]
  - Abdominal distension [Unknown]
  - Limb injury [Recovered/Resolved]
  - Peripheral swelling [Unknown]
  - Pulmonary hypertension [Unknown]
  - Dyspnoea [Unknown]
  - Fluid overload [Unknown]
  - Treatment noncompliance [Unknown]
